FAERS Safety Report 21729381 (Version 1)
Quarter: 2022Q4

REPORT INFORMATION
  Report Type: Spontaneous
  Country: PL (occurrence: PL)
  Receive Date: 20221214
  Receipt Date: 20221214
  Transmission Date: 20230113
  Serious: Yes (Other)
  Sender: FDA-Public Use
  Company Number: PL-ROCHE-3229942

PATIENT
  Age: 58 Year
  Sex: Female

DRUGS (1)
  1. TRASTUZUMAB [Suspect]
     Active Substance: TRASTUZUMAB
     Indication: Ovarian cancer
     Dosage: 3 WEEK CYCLE
     Route: 058
     Dates: start: 202103

REACTIONS (3)
  - Total lung capacity decreased [Unknown]
  - Metastases to the respiratory system [Unknown]
  - Off label use [Unknown]

NARRATIVE: CASE EVENT DATE: 20210301
